FAERS Safety Report 11324070 (Version 1)
Quarter: 2015Q3

REPORT INFORMATION
  Report Type: Spontaneous
  Country: US (occurrence: US)
  Receive Date: 20150730
  Receipt Date: 20150730
  Transmission Date: 20151125
  Serious: No
  Sender: FDA-Public Use
  Company Number: US-BAYER-2015-390044

PATIENT
  Age: 76 Year
  Sex: Female
  Weight: 59.41 kg

DRUGS (4)
  1. LISINOPRIL. [Concomitant]
     Active Substance: LISINOPRIL
  2. MIRALAX [Suspect]
     Active Substance: POLYETHYLENE GLYCOL 3350
     Indication: CONSTIPATION
     Dosage: 1 DOSE, QD
     Route: 048
     Dates: start: 2005
  3. WARFARIN [Concomitant]
     Active Substance: WARFARIN
  4. PACERONE [Concomitant]
     Active Substance: AMIODARONE HYDROCHLORIDE

REACTIONS (1)
  - Product use issue [Unknown]

NARRATIVE: CASE EVENT DATE: 2005
